FAERS Safety Report 7928808-6 (Version None)
Quarter: 2011Q4

REPORT INFORMATION
  Report Type: 
  Country: None (occurrence: None)
  Receive Date: 20111118
  Receipt Date: 20111110
  Transmission Date: 20120403
  Serious: Yes (Other)
  Sender: FDA-Public Use
  Company Number: US-AMGEN-USASP2011059174

PATIENT
  Age: 71 Year
  Sex: Female

DRUGS (12)
  1. CALCIUM WITH VITAMIN D [Concomitant]
  2. PROLIA [Suspect]
     Indication: OSTEOPOROSIS
     Dosage: UNK
     Dates: start: 20110728
  3. LEVOXYL [Concomitant]
  4. OMEPRAZOLE [Concomitant]
  5. PRAVASTATIN [Concomitant]
  6. CENTRUM SILVER [Concomitant]
  7. ASPIRIN [Concomitant]
     Dosage: UNK
  8. ACETAMINOPHEN [Concomitant]
  9. FISH OIL [Concomitant]
  10. CITALOPRAM HYDROBROMIDE [Concomitant]
  11. LOSARTAN + HIDROCLOROTIAZIDA [Concomitant]
  12. ANTIHYPERTENSIVES [Concomitant]
     Indication: HYPERTENSION

REACTIONS (4)
  - CHRONIC LEUKAEMIA [None]
  - DYSPNOEA [None]
  - FATIGUE [None]
  - CHEST PAIN [None]
